FAERS Safety Report 16765759 (Version 1)
Quarter: 2019Q3

REPORT INFORMATION
  Report Type: Spontaneous
  Country: DE (occurrence: DE)
  Receive Date: 20190903
  Receipt Date: 20190903
  Transmission Date: 20191005
  Serious: Yes (Other)
  Sender: FDA-Public Use
  Company Number: PHHY2019DE202875

PATIENT
  Age: 26 Year
  Sex: Male

DRUGS (2)
  1. PARACETAMOL [Suspect]
     Active Substance: ACETAMINOPHEN
     Indication: MUSCLE ATROPHY
     Dosage: UNK
     Route: 065
  2. METAMIZOLE [Suspect]
     Active Substance: METAMIZOLE
     Indication: MUSCLE ATROPHY
     Dosage: UNK
     Route: 065

REACTIONS (5)
  - Acute hepatic failure [Unknown]
  - Liver injury [Unknown]
  - Blood bilirubin increased [Unknown]
  - Hepatotoxicity [Unknown]
  - Agranulocytosis [Unknown]
